FAERS Safety Report 4454360-6 (Version None)
Quarter: 2004Q3

REPORT INFORMATION
  Report Type: 
  Country: None (occurrence: None)
  Receive Date: 20040826
  Receipt Date: 20040602
  Transmission Date: 20050211
  Serious: No
  Sender: FDA-Public Use
  Company Number: WAES 0406USA00267

PATIENT
  Age: 66 Year
  Sex: Female
  Weight: 71.6683 kg

DRUGS (5)
  1. ZETIA [Suspect]
     Indication: HYPERCHOLESTEROLAEMIA
     Dosage: 10 MG/ DAILY/ PO
     Route: 048
     Dates: start: 20040508, end: 20040518
  2. COMBIVENT [Concomitant]
  3. FLOVENT [Concomitant]
  4. HYDRODIURIL [Concomitant]
  5. PREVACID [Concomitant]

REACTIONS (2)
  - MUSCLE TIGHTNESS [None]
  - MYALGIA [None]
